FAERS Safety Report 4387259-4 (Version None)
Quarter: 2004Q2

REPORT INFORMATION
  Report Type: 
  Country: None (occurrence: None)
  Receive Date: 20040630
  Receipt Date: 20040331
  Transmission Date: 20050107
  Serious: No
  Sender: FDA-Public Use
  Company Number: US-GLAXOSMITHKLINE-A0505406A

PATIENT
  Age: 75 Year
  Sex: Female

DRUGS (6)
  1. ADVAIR HFA [Suspect]
     Indication: ILL-DEFINED DISORDER
     Dosage: 1PUFF TWICE PER DAY
     Route: 055
     Dates: start: 20030301
  2. SYNTHROID [Concomitant]
  3. DIGOXIN [Concomitant]
  4. FOSAMAX [Concomitant]
  5. WARFARIN SODIUM [Concomitant]
  6. LITHIUM [Concomitant]

REACTIONS (1)
  - HOARSENESS [None]
